FAERS Safety Report 21347380 (Version 2)
Quarter: 2022Q4

REPORT INFORMATION
  Report Type: Report from Study
  Country: DE (occurrence: DE)
  Receive Date: 20220919
  Receipt Date: 20221107
  Transmission Date: 20230113
  Serious: Yes (Death, Hospitalization, Other)
  Sender: FDA-Public Use
  Company Number: DE-TILLOMEDPR-2022-EPL-002414

PATIENT
  Age: 69 Year
  Sex: Male

DRUGS (17)
  1. DOCETAXEL [Suspect]
     Active Substance: DOCETAXEL
     Indication: Oesophageal carcinoma
     Dosage: UNK,CYCLIC THERAPY WITH FIVE CYCLES
     Route: 065
  2. DOCETAXEL [Suspect]
     Active Substance: DOCETAXEL
     Indication: Adenocarcinoma
  3. PACLITAXEL [Suspect]
     Active Substance: PACLITAXEL
     Indication: Adenocarcinoma
     Dosage: THE RADIATION DOSAGE WAS 39.6 GY OF CALCULATED 41.4 GY
     Route: 065
  4. PACLITAXEL [Suspect]
     Active Substance: PACLITAXEL
     Indication: Oesophageal carcinoma
     Dosage: UNK,(CYCLIC THERAPY WITH FIVE CYCLES)
     Route: 065
  5. MIRTAZAPINE [Suspect]
     Active Substance: MIRTAZAPINE
     Indication: Progressive multifocal leukoencephalopathy
     Dosage: 30MG/DAY
     Route: 065
  6. CARBOPLATIN [Suspect]
     Active Substance: CARBOPLATIN
     Indication: Adenocarcinoma
     Dosage: THE RADIATION DOSAGE WAS 39.6 GY OF CALCULATED 41.4 GY
     Route: 065
  7. CARBOPLATIN [Suspect]
     Active Substance: CARBOPLATIN
     Indication: Oesophageal carcinoma
  8. FLUOROURACIL [Suspect]
     Active Substance: FLUOROURACIL
     Indication: Oesophageal carcinoma
     Dosage: UNK
     Route: 065
  9. FLUOROURACIL [Suspect]
     Active Substance: FLUOROURACIL
     Indication: Adenocarcinoma
  10. OXALIPLATIN [Suspect]
     Active Substance: OXALIPLATIN
     Indication: Adenocarcinoma
     Dosage: UNK
     Route: 065
  11. OXALIPLATIN [Suspect]
     Active Substance: OXALIPLATIN
     Indication: Oesophageal carcinoma
  12. MEFLOQUINE [Suspect]
     Active Substance: MEFLOQUINE
     Indication: Progressive multifocal leukoencephalopathy
     Dosage: 250 MILLIGRAM, 3 TIMES A DAY
     Route: 065
  13. CIDOFOVIR [Suspect]
     Active Substance: CIDOFOVIR
     Indication: Progressive multifocal leukoencephalopathy
     Dosage: 370 MILLIGRAM,(EVERY TWO WEEKS)
     Route: 065
  14. COBALAMIN [Suspect]
     Active Substance: COBALAMIN
     Indication: Progressive multifocal leukoencephalopathy
     Dosage: UNK
     Route: 065
  15. FOLIC ACID [Suspect]
     Active Substance: FOLIC ACID
     Indication: Progressive multifocal leukoencephalopathy
     Dosage: UNK
     Route: 065
  16. DEXAMETHASONE [Suspect]
     Active Substance: DEXAMETHASONE
     Indication: Progressive multifocal leukoencephalopathy
     Dosage: 12 MG/DAY
     Route: 065
  17. LEUCOVORIN [Suspect]
     Active Substance: LEUCOVORIN
     Indication: Product used for unknown indication
     Dosage: UNK
     Route: 065

REACTIONS (7)
  - JC virus infection [Fatal]
  - Progressive multifocal leukoencephalopathy [Fatal]
  - Infection reactivation [Fatal]
  - Leukopenia [Unknown]
  - Lymphopenia [Unknown]
  - Drug ineffective [Unknown]
  - Off label use [Unknown]
